FAERS Safety Report 23826030 (Version 1)
Quarter: 2024Q2

REPORT INFORMATION
  Report Type: Spontaneous
  Country: NL (occurrence: NL)
  Receive Date: 20240507
  Receipt Date: 20240507
  Transmission Date: 20240715
  Serious: Yes (Death, Hospitalization)
  Sender: FDA-Public Use
  Company Number: NL-MYLANLABS-2024M1006033

PATIENT
  Age: 53 Year
  Sex: Female

DRUGS (8)
  1. METHOTREXATE [Suspect]
     Active Substance: METHOTREXATE
     Indication: Psoriasis
     Dosage: 10 MILLIGRAM, QD
     Route: 065
  2. METHOTREXATE [Suspect]
     Active Substance: METHOTREXATE
     Dosage: 2.5 MILLIGRAM, TID
     Route: 065
  3. METHOTREXATE [Suspect]
     Active Substance: METHOTREXATE
     Dosage: 2.5 MILLIGRAM, QID
     Route: 065
  4. FLUCLOXACILLIN [Suspect]
     Active Substance: FLUCLOXACILLIN
     Indication: Psoriasis
     Dosage: UNK
     Route: 065
  5. FLUCLOXACILLIN [Suspect]
     Active Substance: FLUCLOXACILLIN
     Indication: Impetigo
  6. IBUPROFEN [Suspect]
     Active Substance: IBUPROFEN
     Indication: Psoriasis
     Dosage: UNK
     Route: 065
  7. LEUCOVORIN [Suspect]
     Active Substance: LEUCOVORIN\LEUCOVORIN CALCIUM
     Indication: Psoriasis
     Dosage: 15 MILLIGRAM, QID
     Route: 065
  8. CLOBETASOL [Concomitant]
     Active Substance: CLOBETASOL
     Indication: Psoriasis
     Dosage: UNK
     Route: 065

REACTIONS (10)
  - Epidermal necrosis [Fatal]
  - Toxic shock syndrome [Fatal]
  - Leukopenia [Fatal]
  - Pancytopenia [Fatal]
  - Hepatic failure [Fatal]
  - Acute kidney injury [Fatal]
  - Drug ineffective [Fatal]
  - Toxicity to various agents [Fatal]
  - Intentional product misuse [Fatal]
  - Off label use [Unknown]
